FAERS Safety Report 20363965 (Version 1)
Quarter: 2022Q1

REPORT INFORMATION
  Report Type: Spontaneous
  Country: CN (occurrence: CN)
  Receive Date: 20220121
  Receipt Date: 20220121
  Transmission Date: 20220423
  Serious: Yes (Hospitalization)
  Sender: FDA-Public Use
  Company Number: CN-PFIZER INC-202200064686

PATIENT
  Age: 4 Year
  Sex: Male
  Weight: 18.5 kg

DRUGS (5)
  1. CYTARABINE [Suspect]
     Active Substance: CYTARABINE
     Indication: Acute lymphocytic leukaemia
     Dosage: 1.5 G, 2X/DAY
     Route: 041
     Dates: start: 20211222, end: 20211223
  2. PEGASPARGASE [Suspect]
     Active Substance: PEGASPARGASE
     Indication: Acute lymphocytic leukaemia
     Dosage: 1500 IU, 1X/DAY
     Route: 030
     Dates: start: 20211224, end: 20211224
  3. VINCRISTINE SULFATE [Suspect]
     Active Substance: VINCRISTINE SULFATE
     Indication: Acute lymphocytic leukaemia
     Dosage: 1.1 MG, 1X/DAY
     Route: 041
     Dates: start: 20211222, end: 20211222
  4. SODIUM CHLORIDE [Concomitant]
     Active Substance: SODIUM CHLORIDE
     Indication: Acute lymphocytic leukaemia
     Dosage: 25 ML, 1X/DAY
     Route: 041
     Dates: start: 20211222, end: 20211222
  5. DEXTROSE [Concomitant]
     Active Substance: DEXTROSE
     Indication: Acute lymphocytic leukaemia
     Dosage: 250 ML, 2X/DAY
     Route: 041
     Dates: start: 20211222, end: 20211223

REACTIONS (6)
  - Myelosuppression [Recovering/Resolving]
  - Blood fibrinogen decreased [Recovering/Resolving]
  - Platelet count decreased [Recovering/Resolving]
  - White blood cell count decreased [Recovering/Resolving]
  - Neutrophil count decreased [Not Recovered/Not Resolved]
  - Haemoglobin decreased [Not Recovered/Not Resolved]

NARRATIVE: CASE EVENT DATE: 20211229
